FAERS Safety Report 7385338-0 (Version None)
Quarter: 2011Q1

REPORT INFORMATION
  Report Type: 
  Country: None (occurrence: None)
  Receive Date: 20110330
  Receipt Date: 20100825
  Transmission Date: 20110831
  Serious: No
  Sender: FDA-Public Use
  Company Number: US-MYLANLABS-2010S1015791

PATIENT

DRUGS (1)
  1. EMSAM [Suspect]
     Route: 062

REACTIONS (1)
  - ADVERSE EVENT [None]
